FAERS Safety Report 12517029 (Version 1)
Quarter: 2016Q2

REPORT INFORMATION
  Report Type: Spontaneous
  Country: GB (occurrence: GB)
  Receive Date: 20160630
  Receipt Date: 20160630
  Transmission Date: 20160815
  Serious: Yes (Other)
  Sender: FDA-Public Use
  Company Number: GB-AUROBINDO-AUR-APL-2016-08179

PATIENT
  Age: 62 Year
  Sex: Male

DRUGS (4)
  1. MIRTAZAPINE FILM-COATED TABLET [Interacting]
     Active Substance: MIRTAZAPINE
     Indication: DEPRESSION
     Dosage: 60 MG, UNK
     Route: 048
     Dates: start: 201511
  2. IBUPROFEN 200MG [Suspect]
     Active Substance: IBUPROFEN
     Indication: PRODUCT USED FOR UNKNOWN INDICATION
     Dosage: 200 MG, PRN
     Route: 065
  3. MIRTAZAPINE FILM-COATED TABLET [Interacting]
     Active Substance: MIRTAZAPINE
     Dosage: 90 MG, DAILY
     Route: 048
     Dates: start: 201405
  4. TRAMADOL. [Concomitant]
     Active Substance: TRAMADOL
     Indication: PRODUCT USED FOR UNKNOWN INDICATION
     Dosage: UNK
     Route: 065

REACTIONS (4)
  - Abnormal behaviour [Recovering/Resolving]
  - Incorrect dosage administered [Unknown]
  - Amnesia [Recovering/Resolving]
  - Drug interaction [Recovering/Resolving]

NARRATIVE: CASE EVENT DATE: 201511
